FAERS Safety Report 8970545 (Version 1)
Quarter: 2012Q4

REPORT INFORMATION
  Report Type: 
  Country: US (occurrence: US)
  Receive Date: 20121218
  Receipt Date: 20121218
  Transmission Date: 20130627
  Serious: No
  Sender: FDA-Public Use
  Company Number: US-GLAXOSMITHKLINE-A0981250A

PATIENT
  Age: 39 Year
  Sex: Male

DRUGS (2)
  1. NICOTINE POLACRILEX [Suspect]
     Indication: EX-TOBACCO USER
  2. UNSPECIFIED MEDICATIONS [Concomitant]

REACTIONS (6)
  - Haemoptysis [Recovered/Resolved]
  - Nausea [Recovered/Resolved]
  - Hypersensitivity [Recovered/Resolved]
  - Thermal burn [Recovered/Resolved]
  - Disorientation [Recovered/Resolved]
  - Drug interaction [Recovered/Resolved]
